FAERS Safety Report 24153626 (Version 3)
Quarter: 2024Q3

REPORT INFORMATION
  Report Type: Spontaneous
  Country: NZ (occurrence: NZ)
  Receive Date: 20240730
  Receipt Date: 20240812
  Transmission Date: 20241017
  Serious: Yes (Death, Other)
  Sender: MYLAN
  Company Number: NZ-MYLANLABS-2024M1070617

PATIENT
  Sex: Male

DRUGS (30)
  1. CLOZARIL [Suspect]
     Active Substance: CLOZAPINE
     Indication: Schizophrenia
     Dosage: UNK
     Route: 048
     Dates: start: 20240129
  2. CLOZARIL [Suspect]
     Active Substance: CLOZAPINE
     Indication: Dementia with Lewy bodies
     Dosage: 12.5 MILLIGRAM, QD
     Route: 048
     Dates: start: 20240131, end: 202406
  3. BETAMETHASONE [Concomitant]
     Active Substance: BETAMETHASONE\BETAMETHASONE DIPROPIONATE
     Dosage: 50 MILLILITER, BID (ADMINISTER 1 APPLICATION TWICE DAILY)
     Route: 003
     Dates: start: 20230711
  4. CLOZAPINE [Concomitant]
     Active Substance: CLOZAPINE
     Indication: Dementia with Lewy bodies
     Dosage: UNK, QD (ADMINISTER 0.5 TABLET ONCE DAILY)
     Route: 048
     Dates: start: 20240314, end: 20240731
  5. MOMETASONE FUROATE [Concomitant]
     Active Substance: MOMETASONE FUROATE
     Indication: Pemphigoid
     Dosage: 50 GRAM, QD (ADMINISTER 1 APPLICATION ONCE DAILY)
     Route: 003
     Dates: start: 20230427
  6. PARAFFIN, LIQUID;WOOL FAT [Concomitant]
     Indication: Dry eye
     Dosage: UNK, BID (ADMINISTER 1 DROP TWICE DAILY)
     Route: 047
     Dates: start: 20230919
  7. POLY TEARS [Concomitant]
     Indication: Dry eye
     Dosage: UNK, BID (ADMINISTER 1 DROP TWICE DAILY)
     Route: 031
     Dates: start: 20230501
  8. PREDNISONE [Concomitant]
     Active Substance: PREDNISONE
     Dosage: 1 DOSAGE FORM, QD (ADMINISTER 1 TABLET ONCE DAILY)
     Route: 048
     Dates: start: 20240220
  9. DIETARY SUPPLEMENT [Concomitant]
     Active Substance: DIETARY SUPPLEMENT
     Indication: Protein deficiency
     Dosage: UNK, TID 9ADMINISTER 2 SCOOPS THREE TIMES DAILY)
     Route: 048
     Dates: start: 20230922
  10. BISACODYL [Concomitant]
     Active Substance: BISACODYL
     Indication: Bladder neck obstruction
     Dosage: 1 DOSAGE FORM (ADMINISTER 1 SUPPOSITORIES AS REQUIRED)
     Route: 054
     Dates: start: 20240201
  11. FLEET ENEMA [Concomitant]
     Active Substance: SODIUM PHOSPHATE, DIBASIC\SODIUM PHOSPHATE, MONOBASIC
     Indication: Bladder neck obstruction
     Dosage: 1 DOSAGE FORM (ADMINISTER 1 ENEMAS AS REQUIRED)
     Route: 054
     Dates: start: 20240202
  12. LACTULOSE [Concomitant]
     Active Substance: LACTULOSE
     Indication: Constipation
     Dosage: UNK (ADMINISTER 10-20ML AS REQUIRED)
     Route: 048
     Dates: start: 20240201
  13. DOCUSATE SODIUM\SENNOSIDES A AND B [Concomitant]
     Active Substance: DOCUSATE SODIUM\SENNOSIDES A AND B
     Indication: Constipation
     Dosage: UNK (ADMINISTER 1 TO 2 TABLETS AS REQUIRED)
     Route: 048
     Dates: start: 20240201
  14. POLYETHYLENE GLYCOL 3350\POTASSIUM CHLORIDE\SODIUM BICARBONATE\SODIUM [Concomitant]
     Active Substance: POLYETHYLENE GLYCOL 3350\POTASSIUM CHLORIDE\SODIUM BICARBONATE\SODIUM CHLORIDE
     Indication: Constipation
     Dosage: UNK (ADMINISTER 1 TO 2 SACHETS AS REQUIRED)
     Route: 048
     Dates: start: 20240201
  15. METOCLOPRAMIDE HYDROCHLORIDE [Concomitant]
     Active Substance: METOCLOPRAMIDE HYDROCHLORIDE
     Indication: Nausea
     Dosage: UNK (ADMINISTER 10MG AS REQUIRED)
     Route: 058
     Dates: start: 20240628
  16. METOCLOPRAMIDE HYDROCHLORIDE [Concomitant]
     Active Substance: METOCLOPRAMIDE HYDROCHLORIDE
     Indication: Vomiting
  17. MIDAZOLAM [Concomitant]
     Active Substance: MIDAZOLAM
     Indication: Agitation
     Dosage: UNK (ADMINISTER 2.5-5MG AS REQUIRED)
     Route: 058
     Dates: start: 20240628
  18. MIDAZOLAM [Concomitant]
     Active Substance: MIDAZOLAM
     Indication: Anxiety
  19. MORPHINE HYDROCHLORIDE [Concomitant]
     Active Substance: MORPHINE HYDROCHLORIDE
     Indication: Pain
     Dosage: UNK (ADMINISTER 2 TO 5MG AS REQUIRED)
     Route: 048
     Dates: start: 20240701
  20. MORPHINE SULFATE [Concomitant]
     Active Substance: MORPHINE SULFATE
     Indication: Pain
     Dosage: UNK (ADMINISTER 1 TO 2MG AS REQUIRED)
     Route: 058
     Dates: start: 20240628
  21. MORPHINE SULFATE [Concomitant]
     Active Substance: MORPHINE SULFATE
     Indication: Dyspnoea
  22. ACETAMINOPHEN [Concomitant]
     Active Substance: ACETAMINOPHEN
     Indication: Pain
     Dosage: UNK (ADMINISTER 2 TABLETS AS REQUIRED)
     Route: 048
     Dates: start: 20230516
  23. ACETAMINOPHEN [Concomitant]
     Active Substance: ACETAMINOPHEN
     Indication: Pyrexia
  24. QUETIAPINE [Concomitant]
     Active Substance: QUETIAPINE
     Indication: Agitation
     Dosage: UNK (ADMINISTER 0.25MG TO 1 TABLET AS REQUIRED)
     Route: 048
     Dates: start: 20240103
  25. QUETIAPINE [Concomitant]
     Active Substance: QUETIAPINE
     Indication: Aggression
  26. MIDAZOLAM [Concomitant]
     Active Substance: MIDAZOLAM
     Indication: Agitation
     Dosage: 10 MILLIGRAM (ADMINISTER 10MG)
     Route: 058
     Dates: start: 20240724
  27. MIDAZOLAM [Concomitant]
     Active Substance: MIDAZOLAM
     Indication: Restlessness
  28. MORPHINE SULFATE [Concomitant]
     Active Substance: MORPHINE SULFATE
     Indication: Pain
     Dosage: 15 MILLIGRAM (ADMINISTER 15MG)
     Route: 058
     Dates: start: 20240724
  29. HALOPERIDOL [Concomitant]
     Active Substance: HALOPERIDOL
     Indication: Nausea
     Dosage: 1.5 MILLIGRAM (ADMINISTER 1.5MG)
     Route: 058
     Dates: start: 20240724
  30. HALOPERIDOL [Concomitant]
     Active Substance: HALOPERIDOL
     Indication: Anxiety

REACTIONS (3)
  - Death [Fatal]
  - Dementia [Unknown]
  - Off label use [Unknown]
